FAERS Safety Report 9912869 (Version 1)
Quarter: 2014Q1

REPORT INFORMATION
  Report Type: Spontaneous
  Country: US (occurrence: US)
  Receive Date: 20140220
  Receipt Date: 20140220
  Transmission Date: 20141002
  Serious: No
  Sender: FDA-Public Use
  Company Number: US-PFIZER INC-2014049125

PATIENT
  Sex: Female

DRUGS (1)
  1. LYRICA [Suspect]
     Indication: FIBROMYALGIA
     Dosage: UNK, 3X/DAY

REACTIONS (2)
  - Paraesthesia [Unknown]
  - Drug ineffective [Unknown]
